FAERS Safety Report 23949104 (Version 1)
Quarter: 2024Q2

REPORT INFORMATION
  Report Type: Spontaneous
  Country: FR (occurrence: FR)
  Receive Date: 20240607
  Receipt Date: 20240607
  Transmission Date: 20240716
  Serious: Yes (Hospitalization, Other)
  Sender: FDA-Public Use
  Company Number: FR-AFSSAPS-AVNT2024000391

PATIENT
  Age: 44 Year
  Sex: Male

DRUGS (2)
  1. DIAZEPAM [Suspect]
     Active Substance: DIAZEPAM
     Indication: Product used for unknown indication
     Dosage: 10 MG MORNING, MIDI AND EVENING
     Route: 048
     Dates: start: 2022
  2. ALCOHOL [Suspect]
     Active Substance: ALCOHOL
     Indication: Product used for unknown indication
     Dosage: UNK (2 BI?RES /J DE 50 CL +ALCOOL FORT)
     Route: 048
     Dates: start: 2022

REACTIONS (2)
  - Withdrawal syndrome [Recovered/Resolved]
  - Drug use disorder [Not Recovered/Not Resolved]
